FAERS Safety Report 18617383 (Version 2)
Quarter: 2020Q4

REPORT INFORMATION
  Report Type: Spontaneous
  Country: US (occurrence: US)
  Receive Date: 20201215
  Receipt Date: 20201218
  Transmission Date: 20210114
  Serious: Yes (Life-Threatening, Other)
  Sender: FDA-Public Use
  Company Number: US-PFIZER INC-2020487004

PATIENT
  Age: 9 Year
  Sex: Female

DRUGS (5)
  1. ETOPOSIDE. [Suspect]
     Active Substance: ETOPOSIDE
     Indication: GANGLIONEUROBLASTOMA
     Dosage: 120 MG/M2, CYCLIC (120 MG/M2/DAY ON DAYS 2 AND 3)
     Route: 042
  2. VINCRISTINE SULFATE. [Suspect]
     Active Substance: VINCRISTINE SULFATE
     Indication: GANGLIONEUROBLASTOMA
     Dosage: 1.5 MG/M2, CYCLIC (1.5 MG/M2/DOSE ON DAYS 1, 8, AND 15)
     Route: 042
  3. CYCLOPHOSPHAMIDE. [Suspect]
     Active Substance: CYCLOPHOSPHAMIDE
     Indication: GANGLIONEUROBLASTOMA
     Dosage: 2000 MG/M2, CYCLIC (2000 MG/M2/DAY ON DAYS 2 AND 3)
     Route: 042
  4. METHOTREXATE SODIUM. [Suspect]
     Active Substance: METHOTREXATE SODIUM
     Indication: GANGLIONEUROBLASTOMA
     Dosage: UNK UNK, CYCLIC(ON DAY 4 ONLY)
     Route: 042
  5. CISPLATIN. [Suspect]
     Active Substance: CISPLATIN
     Indication: GANGLIONEUROBLASTOMA
     Dosage: 105 MG/M2, CYCLIC (ON DAY 1 ONLY)
     Route: 042

REACTIONS (5)
  - Cystitis haemorrhagic [Unknown]
  - Deafness [Unknown]
  - Clostridium difficile colitis [Unknown]
  - Polyomavirus viraemia [Unknown]
  - Febrile neutropenia [Unknown]
